FAERS Safety Report 14361531 (Version 2)
Quarter: 2018Q1

REPORT INFORMATION
  Report Type: Spontaneous
  Country: NL (occurrence: NL)
  Receive Date: 20180108
  Receipt Date: 20180116
  Transmission Date: 20180509
  Serious: Yes (Other)
  Sender: FDA-Public Use
  Company Number: NL-STRIDES ARCOLAB LIMITED-2018SP000039

PATIENT

DRUGS (7)
  1. MYCOPHENOLATE MOFETIL. [Suspect]
     Active Substance: MYCOPHENOLATE MOFETIL
     Indication: RENAL TRANSPLANT
     Dosage: 1000 MG, BID
     Route: 065
  2. BASILIXIMAB [Suspect]
     Active Substance: BASILIXIMAB
     Indication: RENAL TRANSPLANT
     Dosage: 20 MG ON DAY 1 AND 4, UNK
     Route: 065
  3. PREDNISOLONE. [Suspect]
     Active Substance: PREDNISOLONE
     Dosage: 1 MG/KG/DAY, UNK
     Route: 065
  4. AZATHIOPRINE. [Suspect]
     Active Substance: AZATHIOPRINE
     Indication: RENAL TRANSPLANT
     Dosage: UNK
     Route: 065
  5. PREDNISOLONE. [Suspect]
     Active Substance: PREDNISOLONE
     Indication: RENAL TRANSPLANT
     Dosage: 100 MG/D ON DAYS 1-3
     Route: 065
  6. PREDNISOLONE. [Suspect]
     Active Substance: PREDNISOLONE
     Dosage: 25 MG/D
     Route: 065
  7. TACROLIMUS. [Suspect]
     Active Substance: TACROLIMUS
     Indication: RENAL TRANSPLANT
     Dosage: 0.03 MG/KG, BID
     Route: 065

REACTIONS (10)
  - Proteinuria [Recovered/Resolved]
  - Disease recurrence [Unknown]
  - Thrombotic microangiopathy [Recovered/Resolved]
  - Atypical haemolytic uraemic syndrome [Unknown]
  - Haemolysis [Unknown]
  - Leukopenia [Unknown]
  - Gastrointestinal disorder [Unknown]
  - Headache [Unknown]
  - Nausea [Unknown]
  - Acute kidney injury [Recovered/Resolved]
